FAERS Safety Report 12441654 (Version 1)
Quarter: 2016Q2

REPORT INFORMATION
  Report Type: Spontaneous
  Country: US (occurrence: None)
  Receive Date: 20160606
  Receipt Date: 20160606
  Transmission Date: 20160815
  Serious: Yes (Hospitalization, Disabling)
  Sender: FDA-Public Use
  Company Number: None

PATIENT
  Age: 62 Year
  Sex: Male
  Weight: 67 kg

DRUGS (1)
  1. ZYPREXA RELPREVV [Suspect]
     Active Substance: OLANZAPINE PAMOATE
     Indication: SCHIZOPHRENIA
     Dosage: OLANZAPINE RELPREVV, 300MG Q28 DAYS INTRAMUSCULAR
     Route: 030
     Dates: start: 20160201, end: 20160301

REACTIONS (3)
  - Post-injection delirium sedation syndrome [None]
  - Seizure [None]
  - Cerebrovascular accident [None]

NARRATIVE: CASE EVENT DATE: 20160330
